FAERS Safety Report 12489199 (Version 1)
Quarter: 2016Q2

REPORT INFORMATION
  Report Type: Spontaneous
  Country: IN (occurrence: IN)
  Receive Date: 20160622
  Receipt Date: 20160622
  Transmission Date: 20160815
  Serious: Yes (Other)
  Sender: FDA-Public Use
  Company Number: IN-ELI_LILLY_AND_COMPANY-IN201606005067

PATIENT
  Age: 78 Year
  Sex: Female

DRUGS (3)
  1. WYSOLONE [Concomitant]
     Active Substance: PREDNISOLONE
  2. RANITIDINE. [Concomitant]
     Active Substance: RANITIDINE
  3. FORTEO [Suspect]
     Active Substance: TERIPARATIDE
     Indication: PRODUCT USED FOR UNKNOWN INDICATION
     Dosage: UNK
     Route: 065
     Dates: end: 20160603

REACTIONS (2)
  - Hypersomnia [Unknown]
  - Unresponsive to stimuli [Unknown]
